FAERS Safety Report 9450541 (Version 4)
Quarter: 2014Q1

REPORT INFORMATION
  Report Type: Spontaneous
  Country: US (occurrence: US)
  Receive Date: 20130809
  Receipt Date: 20140331
  Transmission Date: 20141002
  Serious: Yes (Hospitalization)
  Sender: FDA-Public Use
  Company Number: US-GLAXOSMITHKLINE-A1001828A

PATIENT
  Age: 54 Year
  Sex: Female
  Weight: 107.7 kg

DRUGS (1)
  1. AVANDIA [Suspect]
     Indication: DIABETES MELLITUS
     Dosage: 8MG PER DAY
     Route: 048
     Dates: start: 200107, end: 200603

REACTIONS (5)
  - Angina pectoris [Unknown]
  - Stent placement [Unknown]
  - Vascular graft [Unknown]
  - Cardiac disorder [Unknown]
  - Fatigue [Unknown]
